FAERS Safety Report 5241941-5 (Version None)
Quarter: 2007Q1

REPORT INFORMATION
  Report Type: 
  Country: None (occurrence: None)
  Receive Date: 20070220
  Receipt Date: 20070209
  Transmission Date: 20070707
  Serious: Yes (Hospitalization)
  Sender: FDA-Public Use
  Company Number: FR-PFIZER INC-2007011475

PATIENT
  Age: 81 Year
  Sex: Female

DRUGS (6)
  1. NEURONTIN [Suspect]
     Indication: NEURALGIA
     Route: 048
  2. DOGMATIL [Suspect]
     Route: 048
     Dates: end: 20061201
  3. FUROSEMIDE [Concomitant]
     Route: 048
  4. ASPIRIN [Concomitant]
     Route: 048
  5. ENOXAPARIN SODIUM [Concomitant]
     Route: 058
  6. BISOPROLOL FUMARATE [Concomitant]
     Route: 048

REACTIONS (6)
  - ACUTE MYOCARDIAL INFARCTION [None]
  - ACUTE PULMONARY OEDEMA [None]
  - BLOOD PRESSURE DECREASED [None]
  - OVERDOSE [None]
  - PETIT MAL EPILEPSY [None]
  - RENAL FAILURE [None]
